FAERS Safety Report 10179226 (Version 1)
Quarter: 2014Q2

REPORT INFORMATION
  Report Type: Spontaneous
  Country: US (occurrence: US)
  Receive Date: 20140519
  Receipt Date: 20140519
  Transmission Date: 20141212
  Serious: No
  Sender: FDA-Public Use
  Company Number: US-PFIZER INC-2014135358

PATIENT
  Age: 53 Year
  Sex: Female
  Weight: 58.5 kg

DRUGS (5)
  1. DICLOFENAC SODIUM/MISOPROSTOL [Suspect]
     Indication: SPONDYLITIS
     Dosage: UNK
  2. DICLOFENAC SODIUM/MISOPROSTOL [Suspect]
     Indication: ARTHRITIS
  3. ACIPHEX [Concomitant]
     Indication: ABDOMINAL DISCOMFORT
     Dosage: UNK
  4. CLONAZEPAM [Concomitant]
     Indication: ANXIETY
     Dosage: UNK
  5. PROAIR [Concomitant]
     Indication: DYSPNOEA
     Dosage: UNK

REACTIONS (1)
  - Drug ineffective [Unknown]
